FAERS Safety Report 9641258 (Version 2)
Quarter: 2013Q4

REPORT INFORMATION
  Report Type: Spontaneous
  Country: GB (occurrence: GB)
  Receive Date: 20131023
  Receipt Date: 20131023
  Transmission Date: 20140711
  Serious: Yes (Hospitalization)
  Sender: FDA-Public Use
  Company Number: GB-TAKEDA-THQ2013A02759

PATIENT
  Sex: 0

DRUGS (3)
  1. LANSOPRAZOLE [Suspect]
     Indication: PRODUCT USED FOR UNKNOWN INDICATION
     Dosage: 30 MG, QD
  2. CIPROFLOXACIN [Suspect]
     Indication: PRODUCT USED FOR UNKNOWN INDICATION
     Dosage: 4/52
  3. FERROUS SULFATE [Suspect]
     Indication: PRODUCT USED FOR UNKNOWN INDICATION
     Dosage: 200 MG, TID

REACTIONS (10)
  - Hypozincaemia [Unknown]
  - Alopecia [Unknown]
  - Erythema [Unknown]
  - Impaired healing [Unknown]
  - Malnutrition [Unknown]
  - Blood magnesium decreased [Unknown]
  - Blood copper increased [Unknown]
  - Selenium deficiency [Unknown]
  - Fall [Unknown]
  - Asthenia [Unknown]
